FAERS Safety Report 9428825 (Version 1)
Quarter: 2013Q3

REPORT INFORMATION
  Report Type: Spontaneous
  Country: US (occurrence: US)
  Receive Date: 20130730
  Receipt Date: 20130730
  Transmission Date: 20140515
  Serious: No
  Sender: FDA-Public Use
  Company Number: US-ABBOTT-13P-163-1033184-00

PATIENT
  Age: 76 Year
  Sex: Male
  Weight: 113.5 kg

DRUGS (7)
  1. NIASPAN (COATED) [Suspect]
     Indication: BLOOD CHOLESTEROL INCREASED
     Dates: start: 201203
  2. WARFARIN [Concomitant]
     Indication: CARDIAC DISORDER
  3. METOPROLOL [Concomitant]
     Indication: CARDIAC DISORDER
  4. LISINOPRIL [Concomitant]
     Indication: CARDIAC DISORDER
  5. RANEXA [Concomitant]
     Indication: CARDIAC DISORDER
  6. LIPITOR [Concomitant]
     Indication: BLOOD CHOLESTEROL INCREASED
  7. ASPIRIN [Concomitant]
     Indication: PRODUCT USED FOR UNKNOWN INDICATION
     Dosage: 30 MINUTES BEFORE NIASPAN COATED

REACTIONS (4)
  - Muscle spasms [Not Recovered/Not Resolved]
  - Pruritus [Not Recovered/Not Resolved]
  - Paraesthesia [Not Recovered/Not Resolved]
  - Feeling hot [Not Recovered/Not Resolved]
